FAERS Safety Report 4571123-1 (Version None)
Quarter: 2005Q1

REPORT INFORMATION
  Report Type: 
  Country: None (occurrence: None)
  Receive Date: 20050202
  Receipt Date: 20050118
  Transmission Date: 20050727
  Serious: Yes (Hospitalization)
  Sender: FDA-Public Use
  Company Number: JP_050105669

PATIENT
  Age: 4 Year
  Sex: Female
  Weight: 13 kg

DRUGS (1)
  1. HUMATROPE [Suspect]
     Indication: CHONDRODYSTROPHY
     Dosage: 0.6 MG/6 WEEK
     Dates: start: 20040518

REACTIONS (3)
  - ADENOIDAL HYPERTROPHY [None]
  - HEPATIC FUNCTION ABNORMAL [None]
  - UPPER RESPIRATORY TRACT INFLAMMATION [None]
